FAERS Safety Report 20032775 (Version 8)
Quarter: 2024Q2

REPORT INFORMATION
  Report Type: Report from Study
  Country: CH (occurrence: CH)
  Receive Date: 20211104
  Receipt Date: 20240626
  Transmission Date: 20240716
  Serious: Yes (Hospitalization)
  Sender: FDA-Public Use
  Company Number: CH-ABBVIE-20K-151-3587353-00

PATIENT
  Age: 64 Year
  Sex: Female
  Weight: 88 kg

DRUGS (16)
  1. SKYRIZI [Suspect]
     Active Substance: RISANKIZUMAB-RZAA
     Indication: Psoriasis
     Route: 058
     Dates: start: 20200529, end: 20200626
  2. SKYRIZI [Suspect]
     Active Substance: RISANKIZUMAB-RZAA
     Route: 058
     Dates: start: 20200626, end: 20201216
  3. OPTIDERM F [Concomitant]
     Indication: Dry skin
     Dosage: FREQUENCY TEXT: AS NEEDED?30 MG/G MACROGOL-6- LAURYLETHER RESP. 50 MG/G UREA
     Route: 061
     Dates: start: 202104
  4. ENSTILAR [Concomitant]
     Active Substance: BETAMETHASONE DIPROPIONATE\CALCIPOTRIENE HYDRATE
     Indication: Psoriasis
     Dosage: FOAM?50 MCG/G CALCIPOTRIOL, 0,5 MG/G BETHAMETASON
     Route: 061
     Dates: start: 20210107
  5. ANTIDRY BATH [Concomitant]
     Indication: Psoriasis
     Route: 061
     Dates: start: 202105
  6. ANTIDRY BATH [Concomitant]
     Indication: Psoriasis
     Route: 061
     Dates: start: 2016, end: 202001
  7. EXCIPIAL U LIPOLOTIO [Concomitant]
     Indication: Psoriasis
     Route: 061
     Dates: start: 20200107
  8. BETAHISTINE [Concomitant]
     Active Substance: BETAHISTINE
     Indication: Deafness
     Dosage: FREQUENCY TEXT: 1-0-0-1
     Route: 048
     Dates: start: 2010
  9. Optiderm [Concomitant]
     Indication: Dry skin
     Dosage: 30 MG/G MACROGOL-6- LAURYLETHER RESP. 50 MG/G UREA, AS NEEDED
     Route: 061
     Dates: start: 202104
  10. IXEKIZUMAB [Suspect]
     Active Substance: IXEKIZUMAB
     Indication: Psoriasis
     Route: 065
     Dates: start: 202112, end: 202202
  11. BUTYLSCOPOLAMINE BROMIDE [Concomitant]
     Active Substance: BUTYLSCOPOLAMINE BROMIDE
     Indication: Abdominal pain
     Dosage: AS NEEDED
     Dates: start: 20200602
  12. NEOTIGASON [Concomitant]
     Active Substance: ACITRETIN
     Indication: Psoriasis
     Dates: start: 20200107, end: 20200520
  13. Actinica [Concomitant]
     Indication: Prophylaxis
     Dosage: SUNSCREEN DAYLONG
     Route: 061
  14. Bioflorin [Concomitant]
     Indication: Diarrhoea
     Dosage: FREQUENCY TEXT: AS NEEDED
  15. DAFALGAN [Concomitant]
     Active Substance: ACETAMINOPHEN
     Indication: Back pain
     Dosage: FREQUENCY TEXT: 1-0-0-1
     Route: 048
     Dates: start: 2014
  16. PROTOPIC [Concomitant]
     Active Substance: TACROLIMUS
     Indication: Erythema
     Dosage: FREQUENCY: AS NEEDED?1MG/G
     Route: 061
     Dates: start: 20200609

REACTIONS (11)
  - Cholecystitis [Recovered/Resolved]
  - Cholelithiasis [Recovered/Resolved]
  - Abdominal pain [Not Recovered/Not Resolved]
  - Diarrhoea [Not Recovered/Not Resolved]
  - Sleep disorder [Unknown]
  - Musculoskeletal chest pain [Recovered/Resolved]
  - Hepatic cyst [Not Recovered/Not Resolved]
  - Headache [Recovered/Resolved]
  - Helicobacter gastritis [Recovered/Resolved]
  - Superficial vein thrombosis [Recovering/Resolving]
  - Cholelithiasis [Recovered/Resolved]

NARRATIVE: CASE EVENT DATE: 20200531
